FAERS Safety Report 13946649 (Version 3)
Quarter: 2018Q4

REPORT INFORMATION
  Report Type: Spontaneous
  Country: US (occurrence: US)
  Receive Date: 20170907
  Receipt Date: 20181025
  Transmission Date: 20190204
  Serious: Yes (Hospitalization, Other)
  Sender: FDA-Public Use
  Company Number: US-DSJP-DSU-2017-135583

PATIENT

DRUGS (3)
  1. BENICAR [Suspect]
     Active Substance: OLMESARTAN MEDOXOMIL
     Indication: HYPERTENSION
     Dosage: 20 MG, QD
     Dates: start: 20061101, end: 20061206
  2. BENICAR HCT [Suspect]
     Active Substance: HYDROCHLOROTHIAZIDE\OLMESARTAN MEDOXOMIL
     Indication: HYPERTENSION
     Dosage: 20/12.5MG, QD
     Route: 048
     Dates: start: 20110510, end: 20170426
  3. BENICAR [Suspect]
     Active Substance: OLMESARTAN MEDOXOMIL
     Dosage: 40 MG (HALF TABLET), QD
     Dates: start: 20061206

REACTIONS (8)
  - Product administration error [Unknown]
  - Gastrointestinal haemorrhage [Unknown]
  - Diverticulum intestinal [Not Recovered/Not Resolved]
  - Weight decreased [Recovered/Resolved]
  - Haemorrhoids [Not Recovered/Not Resolved]
  - Diverticulitis [Unknown]
  - Hiatus hernia [Unknown]
  - Gastrooesophageal reflux disease [Recovering/Resolving]

NARRATIVE: CASE EVENT DATE: 20061101
